FAERS Safety Report 14305847 (Version 1)
Quarter: 2017Q4

REPORT INFORMATION
  Report Type: Spontaneous
  Country: US (occurrence: US)
  Receive Date: 20171219
  Receipt Date: 20171219
  Transmission Date: 20180321
  Serious: Yes (Hospitalization)
  Sender: FDA-Public Use
  Company Number: US-ELI_LILLY_AND_COMPANY-US201712006572

PATIENT
  Age: 50 Year
  Sex: Male

DRUGS (2)
  1. HUMULIN R U-500 KWIKPEN [Suspect]
     Active Substance: INSULIN HUMAN
     Indication: TYPE 2 DIABETES MELLITUS
     Dosage: 135 U, BID
     Route: 058
     Dates: start: 20170613
  2. HUMULIN R U-500 KWIKPEN [Suspect]
     Active Substance: INSULIN HUMAN
     Dosage: UNK UNK, BID
     Route: 058

REACTIONS (4)
  - Expired product administered [Recovering/Resolving]
  - Blood glucose increased [Recovering/Resolving]
  - Oral candidiasis [Unknown]
  - Abscess jaw [Unknown]

NARRATIVE: CASE EVENT DATE: 20171114
